FAERS Safety Report 4967178-2 (Version None)
Quarter: 2006Q2

REPORT INFORMATION
  Report Type: 
  Country: None (occurrence: None)
  Receive Date: 20060410
  Receipt Date: 20060314
  Transmission Date: 20061013
  Serious: Yes (Other)
  Sender: FDA-Public Use
  Company Number: 2006AP01301

PATIENT
  Age: 21701 Day
  Sex: Female

DRUGS (6)
  1. ARIMIDEX [Suspect]
     Indication: BREAST CANCER
     Route: 048
     Dates: start: 20051115
  2. MAGMITT [Concomitant]
     Route: 048
     Dates: start: 20051019, end: 20051214
  3. GLYCYRON [Concomitant]
     Route: 048
     Dates: start: 20051115, end: 20060222
  4. CYCLOPHOSPHAMIDE [Concomitant]
     Dates: end: 20050914
  5. METHOTREXATE [Concomitant]
     Dates: end: 20050914
  6. FLUOROURACIL [Concomitant]
     Dates: end: 20050914

REACTIONS (3)
  - DIPLOPIA [None]
  - INTRAOCULAR PRESSURE INCREASED [None]
  - VITH NERVE PARALYSIS [None]
